FAERS Safety Report 4744301-6 (Version None)
Quarter: 2005Q3

REPORT INFORMATION
  Report Type: 
  Country: None (occurrence: None)
  Receive Date: 20050811
  Receipt Date: 20050811
  Transmission Date: 20060218
  Serious: Yes (Hospitalization)
  Sender: FDA-Public Use
  Company Number: None

PATIENT
  Sex: Male
  Weight: 51.8 kg

DRUGS (2)
  1. LOVENOX [Suspect]
     Indication: THROMBOSIS PROPHYLAXIS
     Dosage: 40MG QDAY SUBCUTANEOUS
     Route: 058
  2. CASPOFUNGIN [Concomitant]

REACTIONS (3)
  - ANTI-PLATELET ANTIBODY POSITIVE [None]
  - CANDIDA SEPSIS [None]
  - THROMBOCYTOPENIA [None]
